FAERS Safety Report 8237622 (Version 2)
Quarter: 2015Q1

REPORT INFORMATION
  Report Type: Spontaneous
  Country: US (occurrence: None)
  Receive Date: 20111103
  Receipt Date: 20150226
  Transmission Date: 20150721
  Serious: Yes (Hospitalization)
  Sender: FDA-Public Use
  Company Number: TPA2011A06890

PATIENT
  Age: 81 Year
  Sex: Female
  Weight: 83.01 kg

DRUGS (3)
  1. SULFONYLUREA (DRUG USED IN DIABETES) [Concomitant]
  2. ACTOS [Suspect]
     Active Substance: PIOGLITAZONE HYDROCHLORIDE
     Indication: TYPE 2 DIABETES MELLITUS
     Dosage: 30 MG, 1 IN 1 D, PER ORAL
     Route: 048
     Dates: start: 200009, end: 201010
  3. METFORMIN [Concomitant]
     Active Substance: METFORMIN HYDROCHLORIDE

REACTIONS (7)
  - Pollakiuria [None]
  - Stress urinary incontinence [None]
  - Haematuria [None]
  - Nocturia [None]
  - Bladder cancer [None]
  - Urinary retention [None]
  - Dysuria [None]

NARRATIVE: CASE EVENT DATE: 20100908
